FAERS Safety Report 8629817 (Version 3)
Quarter: 2012Q4

REPORT INFORMATION
  Report Type: Report from Study
  Country: CA (occurrence: CA)
  Receive Date: 20120622
  Receipt Date: 20120906
  Transmission Date: 20130627
  Serious: Yes (Hospitalization)
  Sender: FDA-Public Use
  Company Number: CA-UCBSA-059851

PATIENT
  Age: 47 Year
  Sex: Female
  Weight: 81.64 kg

DRUGS (7)
  1. CIMZIA [Suspect]
     Indication: RHEUMATOID ARTHRITIS
     Route: 058
     Dates: start: 20120605, end: 20120627
  2. MTX [Concomitant]
     Indication: RHEUMATOID ARTHRITIS
     Route: 058
     Dates: start: 201110
  3. ARAVA [Concomitant]
     Indication: RHEUMATOID ARTHRITIS
     Route: 048
     Dates: start: 201202
  4. PLAQUENIL [Concomitant]
     Indication: RHEUMATOID ARTHRITIS
     Route: 048
     Dates: start: 201110
  5. METOPROLOL [Concomitant]
     Indication: HYPERTENSION
     Route: 048
  6. RAMIPRIL [Concomitant]
     Indication: HYPERTENSION
     Route: 048
  7. HUMULOG INSULIN [Concomitant]
     Indication: DIABETES MELLITUS
     Dosage: DOSE VARIES, ROUTE: PUMP
     Dates: start: 2001

REACTIONS (3)
  - Angina unstable [Recovering/Resolving]
  - Gastrointestinal haemorrhage [Recovered/Resolved]
  - Inappropriate schedule of drug administration [Unknown]
